FAERS Safety Report 16796139 (Version 1)
Quarter: 2019Q3

REPORT INFORMATION
  Report Type: Spontaneous
  Country: US (occurrence: US)
  Receive Date: 20190911
  Receipt Date: 20190911
  Transmission Date: 20191005
  Serious: No
  Sender: FDA-Public Use
  Company Number: US-009507513-1909USA003423

PATIENT
  Age: 59 Year
  Sex: Female

DRUGS (8)
  1. ASMANEX [Suspect]
     Active Substance: MOMETASONE FUROATE
     Indication: CHRONIC OBSTRUCTIVE PULMONARY DISEASE
     Dosage: 1 PUFF IN THE MORNING AND 1 PUFF AT NIGHT
     Route: 048
     Dates: start: 201903
  2. ANASTROZOLE. [Concomitant]
     Active Substance: ANASTROZOLE
  3. ALBUTEROL. [Concomitant]
     Active Substance: ALBUTEROL
  4. POTASSIUM (UNSPECIFIED) [Concomitant]
     Active Substance: POTASSIUM
  5. MONTELUKAST [Concomitant]
     Active Substance: MONTELUKAST SODIUM
  6. ALBUTEROL SULFATE. [Concomitant]
     Active Substance: ALBUTEROL SULFATE
  7. MOTRIN [Concomitant]
     Active Substance: IBUPROFEN
  8. TRAMADOL HYDROCHLORIDE. [Concomitant]
     Active Substance: TRAMADOL HYDROCHLORIDE

REACTIONS (8)
  - Circumstance or information capable of leading to medication error [Unknown]
  - Product use in unapproved indication [Unknown]
  - Poor quality sleep [Recovered/Resolved]
  - Product quality issue [Unknown]
  - Cough [Recovered/Resolved]
  - Anxiety [Recovered/Resolved]
  - Product dose omission [Unknown]
  - Accidental exposure to product [Unknown]

NARRATIVE: CASE EVENT DATE: 201903
